FAERS Safety Report 10360201 (Version 1)
Quarter: 2014Q3

REPORT INFORMATION
  Report Type: Spontaneous
  Country: US (occurrence: None)
  Receive Date: 20140731
  Receipt Date: 20140731
  Transmission Date: 20150326
  Serious: No
  Sender: FDA-Public Use
  Company Number: None

PATIENT
  Sex: Female
  Weight: 62.05 kg

DRUGS (1)
  1. LOESTRIN NOS [Suspect]
     Active Substance: ETHINYL ESTRADIOL\NORETHINDRONE ACETATE
     Indication: AMENORRHOEA
     Dosage: 1/20 I PO QD
     Route: 048
     Dates: start: 20140729

REACTIONS (1)
  - Drug intolerance [None]
